APPROVED DRUG PRODUCT: LORAZEPAM
Active Ingredient: LORAZEPAM
Strength: 1MG
Dosage Form/Route: TABLET;ORAL
Application: A071435 | Product #001
Applicant: HALSEY DRUG CO INC
Approved: Sep 1, 1987 | RLD: No | RS: No | Type: DISCN